FAERS Safety Report 4531731-0 (Version None)
Quarter: 2004Q4

REPORT INFORMATION
  Report Type: 
  Country: None (occurrence: None)
  Receive Date: 20041216
  Receipt Date: 20041206
  Transmission Date: 20050328
  Serious: Yes (Hospitalization)
  Sender: FDA-Public Use
  Company Number: US014415

PATIENT
  Sex: Male

DRUGS (1)
  1. ACTIQ [Suspect]
     Dosage: 800 UG BUCCAL
     Route: 002

REACTIONS (3)
  - ALCOHOL USE [None]
  - CARDIAC ARREST [None]
  - SELF-MEDICATION [None]
